FAERS Safety Report 19647743 (Version 1)
Quarter: 2021Q3

REPORT INFORMATION
  Report Type: Spontaneous
  Country: CN (occurrence: CN)
  Receive Date: 20210802
  Receipt Date: 20210802
  Transmission Date: 20211014
  Serious: Yes (Other)
  Sender: FDA-Public Use
  Company Number: CN-ROCHE-2880570

PATIENT
  Sex: Male

DRUGS (7)
  1. CISPLATIN. [Concomitant]
     Active Substance: CISPLATIN
     Indication: SMALL CELL LUNG CANCER
     Dosage: EP 1 CYCLE
  2. TECENTRIQ [Suspect]
     Active Substance: ATEZOLIZUMAB
     Indication: SMALL CELL LUNG CANCER
     Route: 041
     Dates: start: 2020
  3. ETOPOSIDE. [Concomitant]
     Active Substance: ETOPOSIDE
     Dosage: EP 1 CYCLE
  4. ETOPOSIDE. [Concomitant]
     Active Substance: ETOPOSIDE
     Indication: SMALL CELL LUNG CANCER
     Dosage: 0.2G DAY1, 0.15G DAY2?3
     Dates: start: 2020
  5. CARBOPLATIN. [Concomitant]
     Active Substance: CARBOPLATIN
     Indication: SMALL CELL LUNG CANCER
     Dates: start: 2020
  6. DOCETAXEL. [Concomitant]
     Active Substance: DOCETAXEL
     Indication: SMALL CELL LUNG CANCER
     Dates: start: 20210409
  7. NEDAPLATIN [Concomitant]
     Active Substance: NEDAPLATIN
     Indication: SMALL CELL LUNG CANCER
     Dates: start: 20210409

REACTIONS (1)
  - Myelosuppression [Unknown]
